FAERS Safety Report 7362324-8 (Version None)
Quarter: 2011Q1

REPORT INFORMATION
  Report Type: 
  Country: None (occurrence: None)
  Receive Date: 20110309
  Receipt Date: 20110223
  Transmission Date: 20110831
  Serious: Yes (Hospitalization)
  Sender: FDA-Public Use
  Company Number: JPI-P-014019

PATIENT
  Age: 36 Year
  Sex: Female
  Weight: 68.0396 kg

DRUGS (5)
  1. XYREM [Suspect]
     Indication: NARCOLEPSY
     Dosage: SEE IMAGE
     Route: 048
     Dates: start: 20100101, end: 20100309
  2. XYREM [Suspect]
     Indication: NARCOLEPSY
     Dosage: SEE IMAGE
     Route: 048
     Dates: start: 20110227
  3. XYREM [Suspect]
     Indication: NARCOLEPSY
     Dosage: SEE IMAGE
     Route: 048
     Dates: start: 20100129, end: 20100101
  4. XYREM [Suspect]
     Indication: NARCOLEPSY
     Dosage: SEE IMAGE
     Route: 048
     Dates: start: 20100101, end: 20100101
  5. XYREM [Suspect]
     Indication: NARCOLEPSY
     Dosage: SEE IMAGE
     Route: 048
     Dates: start: 20100310, end: 20110219

REACTIONS (12)
  - DIZZINESS [None]
  - SOMNOLENCE [None]
  - PHARYNGITIS STREPTOCOCCAL [None]
  - PAIN [None]
  - COLLAPSE OF LUNG [None]
  - PNEUMONIA [None]
  - BACK PAIN [None]
  - MIGRAINE [None]
  - URINARY TRACT INFECTION [None]
  - COLONIC POLYP [None]
  - CONDITION AGGRAVATED [None]
  - SINUSITIS [None]
